FAERS Safety Report 5724600-1 (Version None)
Quarter: 2008Q2

REPORT INFORMATION
  Report Type: 
  Country: None (occurrence: None)
  Receive Date: 20080430
  Receipt Date: 20080430
  Transmission Date: 20081010
  Serious: No
  Sender: FDA-Public Use
  Company Number: None

PATIENT
  Age: 83 Year
  Sex: Male
  Weight: 74.8435 kg

DRUGS (1)
  1. LEVAQUIN [Suspect]
     Indication: BRONCHITIS
     Dosage: 500 MG DAILY PO
     Route: 048
     Dates: start: 20080417, end: 20080420

REACTIONS (3)
  - ARTHRALGIA [None]
  - CONTUSION [None]
  - JOINT SWELLING [None]
